FAERS Safety Report 5043776-5 (Version None)
Quarter: 2006Q2

REPORT INFORMATION
  Report Type: 
  Country: None (occurrence: None)
  Receive Date: 20060629
  Receipt Date: 20060620
  Transmission Date: 20061013
  Serious: Yes (Hospitalization)
  Sender: FDA-Public Use
  Company Number: 2006077589

PATIENT
  Age: 74 Year
  Sex: Female
  Weight: 92.9874 kg

DRUGS (23)
  1. DETROL LA [Suspect]
     Indication: HYPERTONIC BLADDER
     Dosage: 4 MG (4 MG, 1 IN 1 D)
     Dates: start: 20060330, end: 20060501
  2. MINITRAN (GLYCERYL TRINITRATE) [Concomitant]
  3. NITROSTAT [Concomitant]
  4. ACETYLSALICYLIC ACID SRT [Concomitant]
  5. CARDIZAM (DILTIAZEM HYDROCHLORIDE) [Concomitant]
  6. FUROSEMIDE [Concomitant]
  7. DIOVAN HCT [Concomitant]
  8. TOPROL-XL [Concomitant]
  9. LISINOPRIL [Concomitant]
  10. NORVASC [Concomitant]
  11. PLAVIX [Concomitant]
  12. POTASSIUM CHLORIDE [Concomitant]
  13. LIPITOR [Concomitant]
  14. ZETIA [Concomitant]
  15. WELCHOL [Concomitant]
  16. FOLIC ACID [Concomitant]
  17. ARANESP [Concomitant]
  18. ACTOS [Concomitant]
  19. INSULIN [Concomitant]
  20. THERAGRAN-M (MINERALS NOS, VITAMINS NOS) [Concomitant]
  21. ALEVE [Concomitant]
  22. PERCOCET [Concomitant]
  23. SYNTHROID [Concomitant]

REACTIONS (2)
  - HEART RATE DECREASED [None]
  - RENAL FAILURE [None]
